FAERS Safety Report 5119434-5 (Version None)
Quarter: 2006Q3

REPORT INFORMATION
  Report Type: 
  Country: None (occurrence: None)
  Receive Date: 20060928
  Receipt Date: 20060916
  Transmission Date: 20061208
  Serious: Yes (Life-Threatening, Hospitalization)
  Sender: FDA-Public Use
  Company Number: REM_00236_2006

PATIENT
  Age: 32 Year
  Sex: Female
  Weight: 50.45 kg

DRUGS (4)
  1. REMODULIN [Suspect]
     Indication: PULMONARY HYPERTENSION
     Dosage: 91 NG/KG/MIN CONTINUOUS IV
     Route: 042
     Dates: start: 20051004
  2. WARFARIN SODIUM [Concomitant]
  3. POTASSIUM CHLORIDE [Concomitant]
  4. LASIX [Concomitant]

REACTIONS (5)
  - BACTERIAL INFECTION [None]
  - CENTRAL LINE INFECTION [None]
  - PULMONARY EMBOLISM [None]
  - PULMONARY INFARCTION [None]
  - SEPTIC EMBOLUS [None]
